FAERS Safety Report 18572011 (Version 2)
Quarter: 2020Q4

REPORT INFORMATION
  Report Type: Report from Study
  Country: BR (occurrence: BR)
  Receive Date: 20201203
  Receipt Date: 20201210
  Transmission Date: 20210114
  Serious: Yes (Hospitalization, Other)
  Sender: FDA-Public Use
  Company Number: BR-UCBSA-2020048055

PATIENT
  Age: 32 Year
  Sex: Female
  Weight: 75 kg

DRUGS (3)
  1. RIFAMPICIN [Concomitant]
     Active Substance: RIFAMPIN
     Indication: TUBERCULOSIS
     Dosage: 4 DOSAGE FORM, ONCE DAILY (QD)
     Route: 048
  2. ISONIAZID. [Concomitant]
     Active Substance: ISONIAZID
     Indication: TUBERCULOSIS
     Dosage: 4 DOSAGE FORM, ONCE DAILY (QD)
     Route: 048
  3. CERTOLIZUMAB PEGOL RA [Suspect]
     Active Substance: CERTOLIZUMAB PEGOL
     Indication: RHEUMATOID ARTHRITIS
     Dosage: 400 MILLIGRAM, EV 4 WEEKS
     Route: 058

REACTIONS (3)
  - Tuberculosis gastrointestinal [Recovered/Resolved]
  - Arthralgia [Not Recovered/Not Resolved]
  - Tuberculosis of genitourinary system [Unknown]

NARRATIVE: CASE EVENT DATE: 202007
